FAERS Safety Report 7444578-2 (Version None)
Quarter: 2011Q2

REPORT INFORMATION
  Report Type: 
  Country: None (occurrence: None)
  Receive Date: 20110429
  Receipt Date: 20110426
  Transmission Date: 20111010
  Serious: Yes (Other)
  Sender: FDA-Public Use
  Company Number: NZ-PFIZER INC-2011090051

PATIENT
  Age: 50 Year

DRUGS (2)
  1. EFFEXOR XR [Suspect]
     Dosage: 150 MG, 1X/DAY
  2. AMITRIPTYLINE [Suspect]
     Dosage: 150 MG, 1X/DAY

REACTIONS (2)
  - HYPERTONIA [None]
  - COGWHEEL RIGIDITY [None]
